FAERS Safety Report 4706908-1 (Version None)
Quarter: 2005Q3

REPORT INFORMATION
  Report Type: 
  Country: None (occurrence: None)
  Receive Date: 20050701
  Receipt Date: 20050622
  Transmission Date: 20060218
  Serious: Yes (Other)
  Sender: FDA-Public Use
  Company Number: HQWYE625923JUN05

PATIENT
  Age: 34 Year
  Sex: Female
  Weight: 58.1 kg

DRUGS (4)
  1. TACROLIMUS, CONTROL FOR SIROLIMUS (TACROLIMUS, [Suspect]
     Indication: PROPHYLAXIS AGAINST TRANSPLANT REJECTION
     Dosage: ORAL
     Route: 048
  2. CELLCEPT [Suspect]
     Dosage: ORAL
     Route: 048
     Dates: end: 20050501
  3. CORTICOSTEROID NOS (CORTICOSTEROID NOS, ) [Concomitant]
     Dosage: ORAL
     Route: 048
  4. ZENAPAX [Suspect]

REACTIONS (3)
  - METASTASES TO LYMPH NODES [None]
  - PNEUMONIA [None]
  - PULMONARY MASS [None]
